FAERS Safety Report 8282882-9 (Version None)
Quarter: 2012Q2

REPORT INFORMATION
  Report Type: 
  Country: None (occurrence: None)
  Receive Date: 20120413
  Receipt Date: 20120402
  Transmission Date: 20120825
  Serious: Yes (Death, Life-Threatening, Hospitalization, Other)
  Sender: FDA-Public Use
  Company Number: US-ACTELION-A-NJ2011-46624

PATIENT

DRUGS (15)
  1. TRACLEER [Suspect]
     Dosage: 125 MG, BID
     Route: 048
     Dates: start: 20120308, end: 20120328
  2. ASPIRIN [Concomitant]
  3. TRACLEER [Suspect]
     Dosage: 125 MG, BID
     Route: 048
     Dates: end: 20120101
  4. PLAVIX [Concomitant]
  5. SUCRALFATE [Concomitant]
  6. NITROGLYCERIN [Concomitant]
  7. TRACLEER [Suspect]
     Indication: PULMONARY ARTERIAL HYPERTENSION
     Dosage: 62.5 MG, BID
     Route: 048
     Dates: start: 20080221
  8. GEMCITABINE [Concomitant]
  9. TRACLEER [Suspect]
     Dosage: 62.5 MG, BID
     Route: 048
     Dates: start: 20120101, end: 20120307
  10. MYCOPHENOLATE MOFETIL (CELLCEPT) [Concomitant]
  11. MUPIROCIN [Concomitant]
  12. AMBIEN [Concomitant]
  13. MS CONTIN [Suspect]
  14. LEXAPRO [Concomitant]
  15. ZOFRAN [Concomitant]

REACTIONS (11)
  - PANCREATIC CARCINOMA METASTATIC [None]
  - DYSPNOEA [None]
  - OEDEMA [None]
  - FATIGUE [None]
  - DYSPNOEA EXERTIONAL [None]
  - ABDOMINAL PAIN [None]
  - WEIGHT DECREASED [None]
  - NAUSEA [None]
  - DEHYDRATION [None]
  - SYNCOPE [None]
  - LIVER FUNCTION TEST ABNORMAL [None]
